FAERS Safety Report 4836151-7 (Version None)
Quarter: 2005Q4

REPORT INFORMATION
  Report Type: 
  Country: None (occurrence: None)
  Receive Date: 20051123
  Receipt Date: 20050810
  Transmission Date: 20060501
  Serious: Yes (Hospitalization, Disabling)
  Sender: FDA-Public Use
  Company Number: US-MERCK-0508USA02123

PATIENT
  Age: 57 Year
  Sex: Female
  Weight: 68 kg

DRUGS (4)
  1. VIOXX [Suspect]
     Indication: SYSTEMIC LUPUS ERYTHEMATOSUS
     Route: 048
     Dates: start: 19990101, end: 20030201
  2. PLAQUENIL [Concomitant]
     Indication: ANALGESIC EFFECT
     Route: 048
  3. NAPROXEN [Concomitant]
     Indication: ANALGESIC EFFECT
     Route: 048
  4. FLEXERIL [Concomitant]
     Indication: ANALGESIC EFFECT
     Route: 048

REACTIONS (8)
  - BEDRIDDEN [None]
  - CARDIAC MURMUR [None]
  - DEEP VEIN THROMBOSIS [None]
  - HAEMANGIOMA OF LIVER [None]
  - INFECTIOUS MONONUCLEOSIS [None]
  - MENIERE'S DISEASE [None]
  - PNEUMONIA [None]
  - VISUAL DISTURBANCE [None]
